FAERS Safety Report 9391799 (Version 1)
Quarter: 2013Q3

REPORT INFORMATION
  Report Type: Spontaneous
  Country: CA (occurrence: CA)
  Receive Date: 20130709
  Receipt Date: 20130709
  Transmission Date: 20140515
  Serious: Yes (Life-Threatening, Hospitalization, Other)
  Sender: FDA-Public Use
  Company Number: CA-B.I. PHARMACEUTICALS,INC./RIDGEFIELD-2013-CN-01201CN

PATIENT
  Age: 66 Year
  Sex: Female

DRUGS (11)
  1. PRADAXA [Suspect]
     Dosage: 300 MG
     Route: 065
  2. ENTERIC COATED ASA [Concomitant]
  3. FLOVENT [Concomitant]
  4. FUROSEMIDE [Concomitant]
  5. HYDROCORTISONE ACETATE CREAM USP [Concomitant]
  6. METOPROLOL [Concomitant]
  7. MULTIVITAMINE(S) [Concomitant]
  8. PANTOPRAZOLE [Concomitant]
  9. SYNTHROID [Concomitant]
  10. VENTOLIN [Concomitant]
  11. VITAMIN D [Concomitant]

REACTIONS (2)
  - Cardiac operation [Not Recovered/Not Resolved]
  - Cardiac valve replacement complication [Not Recovered/Not Resolved]
